FAERS Safety Report 21359008 (Version 1)
Quarter: 2022Q3

REPORT INFORMATION
  Report Type: Report from Study
  Country: MX (occurrence: MX)
  Receive Date: 20220921
  Receipt Date: 20220921
  Transmission Date: 20221027
  Serious: Yes (Other)
  Sender: FDA-Public Use
  Company Number: MX-NOVARTISPH-NVSC2022MX213044

PATIENT
  Age: 89 Year
  Sex: Female
  Weight: 90 kg

DRUGS (1)
  1. GLYCOPYRRONIUM\INDACATEROL [Suspect]
     Active Substance: GLYCOPYRRONIUM\INDACATEROL
     Indication: Bronchitis chronic
     Dosage: 1 DOSAGE FORM, QD (110/50 MG)
     Route: 045
     Dates: start: 2017

REACTIONS (8)
  - Lung neoplasm malignant [Not Recovered/Not Resolved]
  - Cardiac failure [Not Recovered/Not Resolved]
  - Feeling abnormal [Not Recovered/Not Resolved]
  - Haemoglobin decreased [Not Recovered/Not Resolved]
  - Fluid retention [Not Recovered/Not Resolved]
  - Memory impairment [Not Recovered/Not Resolved]
  - Asthenia [Not Recovered/Not Resolved]
  - Listless [Not Recovered/Not Resolved]

NARRATIVE: CASE EVENT DATE: 20220801
